FAERS Safety Report 20259340 (Version 14)
Quarter: 2022Q2

REPORT INFORMATION
  Report Type: Report from Study
  Country: CA (occurrence: CA)
  Receive Date: 20211230
  Receipt Date: 20220526
  Transmission Date: 20220721
  Serious: Yes (Hospitalization, Other)
  Sender: FDA-Public Use
  Company Number: CA-GILEAD-2021-0562307

PATIENT
  Age: 51 Year
  Sex: Female
  Weight: 94 kg

DRUGS (26)
  1. SACITUZUMAB GOVITECAN [Suspect]
     Active Substance: SACITUZUMAB GOVITECAN
     Indication: Triple negative breast cancer
     Dosage: 470 MG
     Route: 042
  2. SACITUZUMAB GOVITECAN [Suspect]
     Active Substance: SACITUZUMAB GOVITECAN
     Dosage: 235 MG MIXED IN 250 ML NACL
     Route: 042
     Dates: start: 20220218, end: 20220218
  3. SACITUZUMAB GOVITECAN [Suspect]
     Active Substance: SACITUZUMAB GOVITECAN
     Dosage: 260 MG MIXED IN 250 ML NACL
     Route: 042
     Dates: start: 20220211, end: 20220211
  4. SACITUZUMAB GOVITECAN [Suspect]
     Active Substance: SACITUZUMAB GOVITECAN
     Dosage: 1045 MG
     Route: 042
     Dates: start: 20211210
  5. TYLENOL [Concomitant]
     Active Substance: ACETAMINOPHEN
     Dosage: 650 MG
     Route: 048
  6. TYLENOL [Concomitant]
     Active Substance: ACETAMINOPHEN
     Dosage: 650 MG PO (PRE-MEDICATION PRIOR TO TRODELVY)
  7. TYLENOL [Concomitant]
     Active Substance: ACETAMINOPHEN
     Dosage: 650 MG PO (PRE-MEDICATION PRIOR TO TRODELVY)
  8. TYLENOL [Concomitant]
     Active Substance: ACETAMINOPHEN
     Dosage: 650 MG PO (PRE-MEDICATION PRIOR TO TRODELVY)
  9. TYLENOL [Concomitant]
     Active Substance: ACETAMINOPHEN
     Dosage: 650 MG PO (PRE-MEDICATION PRIOR TO TRODELVY)
  10. TYLENOL [Concomitant]
     Active Substance: ACETAMINOPHEN
     Dosage: 650 MG PO (PRE-MEDICATION PRIOR TO TRODELVY)
  11. TYLENOL [Concomitant]
     Active Substance: ACETAMINOPHEN
     Dosage: UNK TREATMENT FOR HEADACHE
     Dates: start: 20220506
  12. BENADRYL [Concomitant]
     Active Substance: DIPHENHYDRAMINE HYDROCHLORIDE
     Dosage: 50 MG
     Route: 048
  13. FAMOTIDINE [Concomitant]
     Active Substance: FAMOTIDINE
     Dosage: 40 MG
     Route: 048
  14. FAMOTIDINE [Concomitant]
     Active Substance: FAMOTIDINE
     Dosage: 40 MG PO (PRE-MEDICATION PRIOR TO TRODELVY)
  15. FAMOTIDINE [Concomitant]
     Active Substance: FAMOTIDINE
     Dosage: 40 MG PO (PRE-MEDICATION PRIOR TO TRODELVY)
  16. FAMOTIDINE [Concomitant]
     Active Substance: FAMOTIDINE
     Dosage: 40 MG PO (PRE-MEDICATION PRIOR TO TRODELVY)
  17. FAMOTIDINE [Concomitant]
     Active Substance: FAMOTIDINE
     Dosage: 40 MG PO (PRE-MEDICATION PRIOR TO TRODELVY)
  18. FAMOTIDINE [Concomitant]
     Active Substance: FAMOTIDINE
     Dosage: 40 MG PO (PRE-MEDICATION PRIOR TO TRODELVY)
  19. OXYCODONE [Concomitant]
     Active Substance: OXYCODONE
  20. HYDROMORPHONE HCL [Concomitant]
     Active Substance: HYDROMORPHONE HYDROCHLORIDE
  21. DOCETAXEL [Concomitant]
     Active Substance: DOCETAXEL
  22. GASTROFILM [Concomitant]
  23. GRANISETRON [Concomitant]
     Active Substance: GRANISETRON
     Dosage: 2 MG PRE-MEDICATION PRIOR TO TRODELVY)
     Route: 048
  24. CARBOPLATIN [Concomitant]
     Active Substance: CARBOPLATIN
  25. FLUOROURACIL [Concomitant]
     Active Substance: FLUOROURACIL
  26. EPIRUBICIN [Concomitant]
     Active Substance: EPIRUBICIN

REACTIONS (31)
  - Neutropenic sepsis [Unknown]
  - Constipation [Recovering/Resolving]
  - Colitis [Recovering/Resolving]
  - Flatulence [Recovering/Resolving]
  - Gastrointestinal wall thinning [Recovering/Resolving]
  - Diarrhoea [Recovered/Resolved]
  - Pain [Unknown]
  - Initial insomnia [Unknown]
  - Somnolence [Unknown]
  - Flatulence [Recovered/Resolved]
  - Muscle spasms [Unknown]
  - Abdominal pain [Not Recovered/Not Resolved]
  - Nausea [Recovered/Resolved]
  - Hunger [Unknown]
  - Abdominal distension [Unknown]
  - Constipation [Recovered/Resolved]
  - Weight decreased [Unknown]
  - Hypokalaemia [Not Recovered/Not Resolved]
  - Off label use [Unknown]
  - Product preparation error [Recovered/Resolved]
  - Underdose [Recovered/Resolved]
  - Off label use [Unknown]
  - Diarrhoea [Recovered/Resolved]
  - Diarrhoea [Recovered/Resolved]
  - Headache [Unknown]
  - SARS-CoV-2 test positive [Recovered/Resolved]
  - Nasal congestion [Unknown]
  - Cough [Not Recovered/Not Resolved]
  - Rhinorrhoea [Not Recovered/Not Resolved]
  - Bronchitis [Unknown]
  - Weight increased [Unknown]

NARRATIVE: CASE EVENT DATE: 20211212
